FAERS Safety Report 11835942 (Version 1)
Quarter: 2015Q4

REPORT INFORMATION
  Report Type: Spontaneous
  Country: ES (occurrence: ES)
  Receive Date: 20151215
  Receipt Date: 20151215
  Transmission Date: 20160305
  Serious: Yes (Hospitalization)
  Sender: FDA-Public Use
  Company Number: ES-009507513-1512ESP005829

PATIENT
  Age: 65 Year
  Sex: Female

DRUGS (4)
  1. DEXAMETHASONE. [Suspect]
     Active Substance: DEXAMETHASONE
     Dosage: 1-4 MG, QD
     Route: 048
     Dates: start: 201303, end: 201306
  2. GEFITINIB [Concomitant]
     Active Substance: GEFITINIB
     Dosage: UNK
     Dates: start: 2013, end: 20130709
  3. GEFITINIB [Concomitant]
     Active Substance: GEFITINIB
     Indication: LUNG ADENOCARCINOMA
     Dosage: UNK
     Dates: start: 201303, end: 2013
  4. DEXAMETHASONE. [Suspect]
     Active Substance: DEXAMETHASONE
     Dosage: 4 MG, Q8H
     Route: 042
     Dates: start: 20130227, end: 20130303

REACTIONS (1)
  - Emphysematous cystitis [Recovering/Resolving]

NARRATIVE: CASE EVENT DATE: 20130611
